FAERS Safety Report 26183612 (Version 1)
Quarter: 2025Q4

REPORT INFORMATION
  Report Type: Spontaneous
  Country: US (occurrence: US)
  Receive Date: 20251221
  Receipt Date: 20251221
  Transmission Date: 20260117
  Serious: No
  Sender: MERCK SHARP & DOHME LLC
  Company Number: US-009507513-2360203

PATIENT
  Age: 71 Year
  Sex: Male

DRUGS (5)
  1. IVERMECTIN [Suspect]
     Active Substance: IVERMECTIN
     Indication: Disseminated strongyloidiasis
     Route: 048
  2. TACROLIMUS [Concomitant]
     Active Substance: TACROLIMUS
     Indication: Immunosuppression
  3. MYCOPHENOLIC ACID [Concomitant]
     Active Substance: MYCOPHENOLIC ACID
     Indication: Immunosuppression
  4. PREDNISONE [Concomitant]
     Active Substance: PREDNISONE
     Indication: Immunosuppression
  5. ALBENDAZOLE [Concomitant]
     Active Substance: ALBENDAZOLE
     Indication: Disseminated strongyloidiasis

REACTIONS (1)
  - Product use in unapproved indication [Unknown]
